FAERS Safety Report 7652513-7 (Version None)
Quarter: 2011Q3

REPORT INFORMATION
  Report Type: 
  Country: None (occurrence: None)
  Receive Date: 20110803
  Receipt Date: 20110722
  Transmission Date: 20111222
  Serious: Yes (Hospitalization)
  Sender: FDA-Public Use
  Company Number: US-ELI_LILLY_AND_COMPANY-US201106008531

PATIENT
  Sex: Male

DRUGS (20)
  1. FISH OIL [Concomitant]
     Dosage: 1000 MG, UNKNOWN
     Route: 065
  2. ALLOPURINOL [Concomitant]
     Dosage: 300 MG, UNKNOWN
     Route: 048
  3. LOPRESSOR [Concomitant]
     Dosage: 50 MG, UNKNOWN
     Route: 048
  4. PRILOSEC [Concomitant]
     Dosage: UNK, UNKNOWN
     Route: 065
  5. MUCINEX [Concomitant]
     Dosage: UNK, UNKNOWN
     Route: 065
  6. POTASSIUM CHLORIDE [Concomitant]
     Dosage: 20 MEQ, TID
     Route: 048
  7. FLONASE [Concomitant]
     Dosage: 50 UG, PRN
     Route: 065
  8. LIPITOR [Concomitant]
     Dosage: 40 MG, UNKNOWN
     Route: 048
  9. SYNTHROID [Concomitant]
     Dosage: 175 UG, UNK
     Route: 048
  10. VASERETIC [Concomitant]
     Dosage: 10-25MG, OTHER
     Route: 048
  11. NAPROXEN SODIUM [Concomitant]
     Dosage: 220 MG, PRN
     Route: 065
  12. AVODART [Concomitant]
     Dosage: 0.5 MG, UNKNOWN
     Route: 065
  13. UROXATRAL [Concomitant]
     Dosage: 10 MG, UNKNOWN
     Route: 065
  14. RANEXA [Concomitant]
     Dosage: 1000 MG, QD
     Route: 048
  15. LASIX [Concomitant]
     Dosage: 40 MG, PRN
     Route: 065
  16. INDOCIN [Concomitant]
     Dosage: 75 MG, PRN
     Route: 065
  17. VITAMIN D [Concomitant]
     Dosage: 1000 U, QD
     Route: 048
  18. ASPIRIN [Concomitant]
     Dosage: UNK, UNKNOWN
     Route: 065
  19. EFFIENT [Suspect]
     Indication: PERCUTANEOUS CORONARY INTERVENTION
     Dosage: 10 MG, UNKNOWN
     Route: 065
     Dates: start: 20100820, end: 20110608
  20. GUANFACINE HYDROCHLORIDE [Concomitant]
     Dosage: 1 MG, UNKNOWN
     Route: 048

REACTIONS (4)
  - TRANSIENT ISCHAEMIC ATTACK [None]
  - BLOOD PRESSURE INCREASED [None]
  - TRANSIENT GLOBAL AMNESIA [None]
  - CEREBRAL HYPOPERFUSION [None]
